FAERS Safety Report 5893740-9 (Version None)
Quarter: 2008Q3

REPORT INFORMATION
  Report Type: 
  Country: None (occurrence: None)
  Receive Date: 20080918
  Receipt Date: 20080911
  Transmission Date: 20090109
  Serious: Yes (Other)
  Sender: FDA-Public Use
  Company Number: CHNY2008DE02841

PATIENT
  Sex: Male

DRUGS (6)
  1. NICOTINE [Suspect]
     Indication: SMOKING CESSATION THERAPY
     Dosage: 19 X 2 MG GUMS PER DAY, CHEWED
     Route: 050
  2. DONA (GLUCOSAMINE SULFATE) [Concomitant]
  3. VOLTAREN RESINAT ^GIEGY^ (DICLOFENAC RESINATE) [Concomitant]
  4. BISOBETA (BISOPROLOL FUMARATE) [Concomitant]
  5. METFORMIN HCL [Concomitant]
  6. GLIMEPIRIDE [Concomitant]

REACTIONS (2)
  - BLOOD GLUCOSE INCREASED [None]
  - INTENTIONAL DRUG MISUSE [None]
